FAERS Safety Report 24323170 (Version 1)
Quarter: 2024Q3

REPORT INFORMATION
  Report Type: Spontaneous
  Country: US (occurrence: US)
  Receive Date: 20240916
  Receipt Date: 20240916
  Transmission Date: 20241016
  Serious: Yes (Other)
  Sender: MYLAN
  Company Number: US-MYLANLABS-2024M1083113

PATIENT
  Sex: Female

DRUGS (1)
  1. GABAPENTIN [Suspect]
     Active Substance: GABAPENTIN
     Indication: Herpes zoster
     Dosage: UNK
     Route: 065

REACTIONS (6)
  - Cerebral haemorrhage [Recovered/Resolved]
  - Mental impairment [Unknown]
  - Gait inability [Unknown]
  - Impatience [Unknown]
  - Vertigo [Not Recovered/Not Resolved]
  - Off label use [Unknown]
